FAERS Safety Report 20872090 (Version 2)
Quarter: 2022Q2

REPORT INFORMATION
  Report Type: Spontaneous
  Country: US (occurrence: US)
  Receive Date: 20220525
  Receipt Date: 20220526
  Transmission Date: 20220721
  Serious: No
  Sender: FDA-Public Use
  Company Number: US-ELI_LILLY_AND_COMPANY-US202205007429

PATIENT
  Age: 61 Year
  Sex: Female

DRUGS (2)
  1. EMGALITY [Suspect]
     Active Substance: GALCANEZUMAB-GNLM
     Indication: Migraine
     Dosage: 1 DOSAGE FORM, OTHER
     Route: 065
     Dates: start: 20220517
  2. EMGALITY [Suspect]
     Active Substance: GALCANEZUMAB-GNLM
     Dosage: 1 DOSAGE FORM, OTHER
     Route: 065
     Dates: start: 20220517

REACTIONS (2)
  - Underdose [Unknown]
  - Head discomfort [Unknown]

NARRATIVE: CASE EVENT DATE: 20220517
